FAERS Safety Report 21023976 (Version 1)
Quarter: 2022Q3

REPORT INFORMATION
  Report Type: Spontaneous
  Country: ES (occurrence: ES)
  Receive Date: 20220629
  Receipt Date: 20220629
  Transmission Date: 20221027
  Serious: Yes (Death)
  Sender: FDA-Public Use
  Company Number: None

PATIENT
  Age: 83 Year
  Sex: Female
  Weight: 73 kg

DRUGS (8)
  1. METFORMIN [Suspect]
     Active Substance: METFORMIN HYDROCHLORIDE
     Indication: Diabetes mellitus
     Dosage: UNK (1 COMPRIMIDO CADA 12 HORAS, 50 COMPRIMIDOS)
     Route: 065
     Dates: start: 20150618, end: 20200706
  2. METFORMIN [Suspect]
     Active Substance: METFORMIN HYDROCHLORIDE
     Dosage: UNK (1 COMPRIMIDO CADA 12 HORAS, 60 COMPRIMIDOS) (STRENGHT: 1000 MG)
     Route: 065
     Dates: start: 20200706
  3. HIERRO [Concomitant]
     Indication: Iron deficiency anaemia
     Dosage: UNK  (1 COMPRIMIDO CADA D?A)
     Route: 065
  4. SIMVASTATIN [Concomitant]
     Active Substance: SIMVASTATIN
     Indication: Hypercholesterolaemia
     Dosage: UNK (1 COMPRIMIDO CADA D?A, 28 COMPRIMIDOS)
     Route: 065
     Dates: start: 20140313
  5. LEXATIN [Concomitant]
     Indication: Anxiety
     Dosage: UNK (1 CAPSULA CADA 8 HORAS, 30 C?PSULAS)
     Route: 065
  6. MOVICOL [Concomitant]
     Active Substance: POLYETHYLENE GLYCOL 3350\POTASSIUM CHLORIDE\SODIUM BICARBONATE\SODIUM CHLORIDE
     Indication: Constipation
     Dosage: UNK (1 SOBRE CADA 8 HORAS DURANTE 30 D?AS,  EN SOBRE, 30 SOBRES)
     Route: 065
     Dates: start: 20200802
  7. QUETIAPINA KERN PHARMA [Concomitant]
     Indication: Dementia Alzheimer^s type
     Dosage: UNK  (1 Y MEDIO COMPRIMIDO CADA D?A,  EFG, 60 COMPRIMIDOS)
     Route: 065
     Dates: start: 20190604
  8. ENALAPRIL MALEATE\HYDROCHLOROTHIAZIDE [Concomitant]
     Active Substance: ENALAPRIL MALEATE\HYDROCHLOROTHIAZIDE
     Indication: Hypertension
     Dosage: UNK  (1 COMPRIMIDO CADA D?A)
     Route: 065
     Dates: start: 20110526

REACTIONS (1)
  - Lactic acidosis [Fatal]

NARRATIVE: CASE EVENT DATE: 20200815
